FAERS Safety Report 8188089-8 (Version None)
Quarter: 2012Q1

REPORT INFORMATION
  Report Type: 
  Country: None (occurrence: None)
  Receive Date: 20120306
  Receipt Date: 20120229
  Transmission Date: 20120608
  Serious: Yes (Other)
  Sender: FDA-Public Use
  Company Number: US-PFIZER INC-2012055461

PATIENT
  Sex: Female
  Weight: 66.213 kg

DRUGS (4)
  1. EFFEXOR XR [Suspect]
     Indication: MAJOR DEPRESSION
     Dosage: 225 MG, DAILY
     Dates: start: 20120101
  2. EFFEXOR XR [Suspect]
     Indication: OBSESSIVE-COMPULSIVE DISORDER
  3. EFFEXOR XR [Suspect]
     Indication: ANXIETY
     Dosage: 150 MG, DAILY
     Dates: start: 20111201
  4. EFFEXOR XR [Suspect]
     Indication: BIPOLAR DISORDER

REACTIONS (6)
  - FEELING ABNORMAL [None]
  - FATIGUE [None]
  - AGGRESSION [None]
  - MOOD ALTERED [None]
  - MOOD SWINGS [None]
  - ANXIETY [None]
